APPROVED DRUG PRODUCT: MEXATE-AQ
Active Ingredient: METHOTREXATE SODIUM
Strength: EQ 25MG BASE/ML
Dosage Form/Route: INJECTABLE;INJECTION
Application: A088760 | Product #001
Applicant: BRISTOL MYERS CO
Approved: Feb 14, 1985 | RLD: Yes | RS: No | Type: DISCN